FAERS Safety Report 23338344 (Version 2)
Quarter: 2024Q1

REPORT INFORMATION
  Report Type: Spontaneous
  Country: JP (occurrence: JP)
  Receive Date: 20231226
  Receipt Date: 20240102
  Transmission Date: 20240410
  Serious: Yes (Hospitalization)
  Sender: FDA-Public Use
  Company Number: JP-JNJFOC-20231262659

PATIENT
  Age: 41 Year
  Sex: Male
  Weight: 54 kg

DRUGS (5)
  1. RISPERDAL [Suspect]
     Active Substance: RISPERIDONE
     Indication: Product used for unknown indication
     Dosage: AFTER BREAKFAST AND DINNER
     Route: 048
  2. RISPERDAL [Suspect]
     Active Substance: RISPERIDONE
     Indication: Product used for unknown indication
     Dosage: AFTER BREAKFAST AND DINNER
     Route: 048
  3. VIMPAT [Concomitant]
     Active Substance: LACOSAMIDE
     Dosage: AFTER BREAKFAST AND DINNER
     Route: 048
  4. ZONISAMIDE [Concomitant]
     Active Substance: ZONISAMIDE
     Dosage: AFTER DINNER
     Route: 048
  5. DEPAKENE [Concomitant]
     Active Substance: VALPROIC ACID
     Dosage: AFTER BREAKFAST AND DINNER
     Route: 048

REACTIONS (1)
  - Epilepsy [Unknown]
